FAERS Safety Report 6654006-2 (Version None)
Quarter: 2010Q1

REPORT INFORMATION
  Report Type: 
  Country: None (occurrence: None)
  Receive Date: 20100326
  Receipt Date: 20100312
  Transmission Date: 20100710
  Serious: Yes (Hospitalization, Other)
  Sender: FDA-Public Use
  Company Number: US-ELI_LILLY_AND_COMPANY-US201003005188

PATIENT
  Sex: Female

DRUGS (6)
  1. FORTEO [Suspect]
     Indication: OSTEOPOROSIS
     Dosage: 20 UG, DAILY (1/D)
     Dates: end: 20100206
  2. SYNTHROID [Concomitant]
  3. ATENOLOL [Concomitant]
  4. ZOLOFT [Concomitant]
  5. CALCIUM [Concomitant]
  6. VITAMIN D [Concomitant]

REACTIONS (4)
  - DEEP VEIN THROMBOSIS [None]
  - FALL [None]
  - FEMUR FRACTURE [None]
  - OEDEMA PERIPHERAL [None]
